FAERS Safety Report 17367662 (Version 1)
Quarter: 2020Q1

REPORT INFORMATION
  Report Type: Spontaneous
  Country: US (occurrence: US)
  Receive Date: 20200203
  Receipt Date: 20200203
  Transmission Date: 20200409
  Serious: Yes (Other)
  Sender: FDA-Public Use
  Company Number: None

PATIENT
  Age: 80 Year
  Sex: Male

DRUGS (9)
  1. SERTRALINE [Concomitant]
     Active Substance: SERTRALINE HYDROCHLORIDE
  2. VIRT-CAPS [Concomitant]
     Active Substance: ASCORBIC ACID\BIOTIN\CALCIUM PANTOTHENATE\CYANOCOBALAMIN\FOLIC ACID\NIACINAMIDE\PYRIDOXINE HYDROCHLORIDE\RIBOFLAVIN\THIAMINE MONONITRATE
  3. EZETIMIBE. [Concomitant]
     Active Substance: EZETIMIBE
  4. METOPROL SUC [Concomitant]
  5. FOLIC ACID. [Concomitant]
     Active Substance: FOLIC ACID
  6. SILDENAFIL. [Suspect]
     Active Substance: SILDENAFIL
     Indication: SPONDYLOARTHROPATHY
     Route: 048
  7. SPIRONOLACT [Concomitant]
     Active Substance: SPIRONOLACTONE
  8. PANTOPRAZOLE [Concomitant]
     Active Substance: PANTOPRAZOLE
  9. NEPHRO- VITE [Concomitant]

REACTIONS (1)
  - Acute kidney injury [None]
